FAERS Safety Report 4382634-6 (Version None)
Quarter: 2004Q2

REPORT INFORMATION
  Report Type: 
  Country: None (occurrence: None)
  Receive Date: 20040622
  Receipt Date: 20040614
  Transmission Date: 20050107
  Serious: Yes (Other)
  Sender: FDA-Public Use
  Company Number: CA-GLAXOSMITHKLINE-A0515029A

PATIENT
  Age: 81 Year
  Sex: Male

DRUGS (6)
  1. AVANDIA [Suspect]
     Indication: ILL-DEFINED DISORDER
     Route: 048
     Dates: start: 20000612, end: 20030929
  2. AVAPRO [Concomitant]
  3. DIABETA [Concomitant]
  4. LIPITOR [Concomitant]
  5. ASPIRIN [Concomitant]
  6. ALTACE [Concomitant]

REACTIONS (1)
  - PULMONARY FIBROSIS [None]
